FAERS Safety Report 6432130-7 (Version None)
Quarter: 2009Q4

REPORT INFORMATION
  Report Type: 
  Country: None (occurrence: None)
  Receive Date: 20091105
  Receipt Date: 20091027
  Transmission Date: 20100525
  Serious: Yes (Death)
  Sender: FDA-Public Use
  Company Number: 2009AL006877

PATIENT
  Age: 49 Year
  Sex: Female

DRUGS (15)
  1. FAMOTIDINE [Suspect]
  2. HYDROMORPHONE HCL [Suspect]
  3. LORAZEPAM [Suspect]
  4. METOCLOPRAMIDE [Suspect]
  5. SINGULAIR [Concomitant]
  6. REMERON [Concomitant]
  7. DURAGESIC-100 [Concomitant]
  8. NEFAZODONE HCL [Concomitant]
  9. AMITRIPTYLINE HCL [Concomitant]
  10. PROCHLORPERAZINE [Concomitant]
  11. GEODON [Concomitant]
  12. FLURAZEPAM [Concomitant]
  13. ZYPREXA [Concomitant]
  14. WELLBUTRIN [Concomitant]
  15. PREVACID [Concomitant]

REACTIONS (8)
  - COMPLETED SUICIDE [None]
  - CONDITION AGGRAVATED [None]
  - CONSTIPATION [None]
  - DRUG TOXICITY [None]
  - FEELING ABNORMAL [None]
  - GASTROINTESTINAL HYPOMOTILITY [None]
  - MALAISE [None]
  - UNRESPONSIVE TO STIMULI [None]
